FAERS Safety Report 4839693-3 (Version None)
Quarter: 2005Q4

REPORT INFORMATION
  Report Type: 
  Country: None (occurrence: None)
  Receive Date: 20051125
  Receipt Date: 20051117
  Transmission Date: 20060501
  Serious: Yes (Life-Threatening)
  Sender: FDA-Public Use
  Company Number: 2005-134784-NL

PATIENT
  Age: 42 Year
  Sex: Female

DRUGS (6)
  1. VECURONIUM BROMIDE [Suspect]
     Indication: ANAESTHESIA
     Dosage: 5 MG, ONCE, INTRAVENOUS (NOS)
     Route: 042
  2. FENTANYL [Suspect]
     Indication: ANAESTHESIA
     Dosage: 0.05 MG ONCE, INTRAVENOUS (NOS)
     Route: 042
  3. PROPOFOL [Suspect]
     Indication: ANAESTHESIA
     Dosage: 50 MG ONCE, INTRAVENOUS (NOS)
     Route: 042
  4. NITROUS OXIDE W/ OXYGEN [Suspect]
     Indication: LIFE SUPPORT
     Dosage: RESPIRATORY (INHALATION)
     Route: 055
  5. OXYGEN [Suspect]
     Indication: LIFE SUPPORT
     Dosage: RESPIRATORY (INHALATION)
     Route: 055
  6. SEVOFLURANE [Suspect]
     Indication: LIFE SUPPORT
     Dosage: RESPIRATORY (INHALATION)
     Route: 055

REACTIONS (4)
  - ATRIOVENTRICULAR BLOCK SECOND DEGREE [None]
  - BRADYCARDIA [None]
  - HAEMODYNAMIC INSTABILITY [None]
  - PROCEDURAL COMPLICATION [None]
